FAERS Safety Report 26059563 (Version 2)
Quarter: 2025Q4

REPORT INFORMATION
  Report Type: Spontaneous
  Country: PK (occurrence: PK)
  Receive Date: 20251118
  Receipt Date: 20251211
  Transmission Date: 20260117
  Serious: Yes (Disabling, Other)
  Sender: ROCHE
  Company Number: PK-ROCHE-10000431310

PATIENT
  Age: 54 Year
  Sex: Male

DRUGS (2)
  1. VABYSMO [Suspect]
     Active Substance: FARICIMAB-SVOA
     Indication: Diabetic retinopathy
  2. VABYSMO [Suspect]
     Active Substance: FARICIMAB-SVOA
     Indication: Diabetic retinal oedema

REACTIONS (8)
  - Eye pain [Recovered/Resolved]
  - Endophthalmitis [Unknown]
  - Visual impairment [Unknown]
  - Vitreous floaters [Not Recovered/Not Resolved]
  - Iridocyclitis [Recovering/Resolving]
  - Hypopyon [Recovering/Resolving]
  - Anterior chamber flare [Unknown]
  - Anterior chamber cell [Unknown]

NARRATIVE: CASE EVENT DATE: 20251102
